FAERS Safety Report 9587889 (Version 2)
Quarter: 2013Q4

REPORT INFORMATION
  Report Type: Report from Study
  Country: JP (occurrence: JP)
  Receive Date: 20131003
  Receipt Date: 20131003
  Transmission Date: 20140711
  Serious: Yes (Hospitalization, Other)
  Sender: FDA-Public Use
  Company Number: JP-009507513-2012SP002055

PATIENT
  Age: 59 Year
  Sex: Female
  Weight: 50 kg

DRUGS (24)
  1. RIBAVIRIN [Suspect]
     Indication: CHRONIC HEPATITIS C
     Dosage: 200MG IN THE MORNING AND 400 MG IN THE EVENING
     Route: 048
     Dates: start: 20110126, end: 20110301
  2. RIBAVIRIN [Suspect]
     Dosage: 200MG IN THE MORNING AND 400 MG IN THE EVENING
     Route: 048
     Dates: start: 20110303, end: 20110614
  3. RIBAVIRIN [Suspect]
     Dosage: 200MG IN THE MORNING AND 400 MG IN THE EVENING
     Route: 048
     Dates: start: 20110302, end: 20110302
  4. PEGINTRON [Suspect]
     Indication: CHRONIC HEPATITIS C
     Dosage: 50 MICROGRAM, QW
     Route: 058
     Dates: start: 20110302, end: 20110302
  5. FERON [Suspect]
     Indication: CHRONIC HEPATITIS C
     Dosage: 6 MILLION IU, QD
     Route: 041
     Dates: start: 20110126, end: 20110205
  6. FERON [Suspect]
     Dosage: 3 MILLION IU, QD
     Route: 041
     Dates: start: 20110206, end: 20110209
  7. FERON [Suspect]
     Dosage: 6 MILLION IU, QD
     Route: 041
     Dates: start: 20110210, end: 20110222
  8. FERON [Suspect]
     Dosage: 6 MILLION IU, TIW
     Route: 041
     Dates: start: 20110225, end: 20110301
  9. FERON [Suspect]
     Dosage: 6 MILLION IU, TIW
     Route: 041
     Dates: start: 20110309, end: 20110608
  10. FERON [Suspect]
     Dosage: 6 MILLION IU, QD
     Route: 041
     Dates: start: 20110610, end: 20110614
  11. FERON [Suspect]
     Dosage: DAILY DOSAGE UNKNOWN
     Route: 041
     Dates: start: 20110618, end: 20110618
  12. FERON [Suspect]
     Dosage: DAILY DOSAGE UNKNOWN
     Route: 041
     Dates: start: 20110620, end: 20110620
  13. LOCHOL (FLUVASTATIN SODIUM) [Concomitant]
     Indication: CHRONIC HEPATITIS C
     Dosage: DIVIDED DOSE FREQUENCY UNKNOWN
     Route: 048
     Dates: start: 20110126, end: 20110614
  14. ALFAROL [Concomitant]
     Indication: AUTOIMMUNE THYROIDITIS
     Dosage: DIVIDED DOSE FREQUENCY UNKNOWN
     Route: 048
     Dates: start: 20101206, end: 20110206
  15. VOLTAREN [Concomitant]
     Indication: PYREXIA
     Dosage: USE WHEN NEEDED
     Route: 054
     Dates: start: 20110126, end: 20110330
  16. VOLTAREN [Concomitant]
     Indication: PAIN
  17. RESTAMIN [Concomitant]
     Indication: PRURITUS GENERALISED
     Dosage: DAILY DOSE UNKNOWN, USE WHEN NEEDED
     Route: 061
     Dates: start: 20110224, end: 20110224
  18. MYSLEE [Concomitant]
     Indication: INSOMNIA
     Dosage: 5 MG, PRN
     Route: 048
     Dates: start: 20110131
  19. URSO [Concomitant]
     Indication: CHRONIC HEPATITIS C
     Dosage: DIVIDED DOSE FREQUENCY UNKNOWN
     Route: 048
     Dates: start: 2010, end: 20110125
  20. GASTROM [Concomitant]
     Indication: GASTRITIS PROPHYLAXIS
     Dosage: DIVIDED DOSE FREQUENCY UNKNOWN
     Route: 048
     Dates: start: 2001, end: 20110206
  21. THYRADIN-S [Concomitant]
     Indication: AUTOIMMUNE THYROIDITIS
     Dosage: 50 MICROGRAM, QD
     Route: 048
     Dates: start: 2001, end: 20110116
  22. NORVASC OD [Concomitant]
     Indication: HYPERTENSION
     Dosage: 5 MG, QD
     Route: 048
     Dates: start: 20101206, end: 20110206
  23. EVISTA [Concomitant]
     Indication: OSTEOPOROSIS PROPHYLAXIS
     Dosage: 60 MG, QD
     Route: 048
     Dates: start: 20101206, end: 20110206
  24. DEPAS [Concomitant]
     Indication: DEPRESSIVE SYMPTOM
     Dosage: DIVIDED DOSE FREQUENCY UNKNOWN
     Route: 048
     Dates: start: 20110421

REACTIONS (8)
  - Colitis ischaemic [Recovered/Resolved]
  - Depression [Recovering/Resolving]
  - Insomnia [Recovered/Resolved]
  - Pruritus generalised [Recovering/Resolving]
  - Pyrexia [Recovered/Resolved]
  - Pain [Recovering/Resolving]
  - Malaise [Recovering/Resolving]
  - Depressive symptom [Recovering/Resolving]
